FAERS Safety Report 13738617 (Version 2)
Quarter: 2018Q2

REPORT INFORMATION
  Report Type: Spontaneous
  Country: US (occurrence: US)
  Receive Date: 20170710
  Receipt Date: 20180627
  Transmission Date: 20180711
  Serious: No
  Sender: FDA-Public Use
  Company Number: US-SAOL THERAPEUTICS-2017SAO00261

PATIENT
  Age: 27 Year
  Sex: Female
  Weight: 56.24 kg

DRUGS (4)
  1. LIORESAL [Suspect]
     Active Substance: BACLOFEN
     Indication: MUSCLE SPASTICITY
     Dosage: 899.4 ?G, \DAY
     Route: 037
  2. LIORESAL [Suspect]
     Active Substance: BACLOFEN
     Indication: CEREBRAL PALSY
     Dosage: UNK
     Route: 037
     Dates: start: 20170901
  3. LIORESAL [Suspect]
     Active Substance: BACLOFEN
     Indication: MUSCLE SPASTICITY
     Dosage: 206.81 ?G, \DAY
     Route: 037
     Dates: start: 20090123, end: 20170830
  4. LIORESAL [Suspect]
     Active Substance: BACLOFEN
     Indication: CEREBRAL PALSY
     Dosage: 206.81 ?G, \DAY
     Route: 037
     Dates: start: 20170830, end: 20170901

REACTIONS (5)
  - Therapeutic response decreased [Not Recovered/Not Resolved]
  - Vomiting [Recovered/Resolved]
  - Product selection error [Recovered/Resolved]
  - Dizziness [Recovered/Resolved]
  - Asthenia [Recovered/Resolved]

NARRATIVE: CASE EVENT DATE: 2016
